FAERS Safety Report 12690471 (Version 2)
Quarter: 2016Q3

REPORT INFORMATION
  Report Type: Spontaneous
  Country: JP (occurrence: JP)
  Receive Date: 20160826
  Receipt Date: 20160908
  Transmission Date: 20161109
  Serious: Yes (Hospitalization, Other)
  Sender: FDA-Public Use
  Company Number: JP-INDIVIOR LIMITED-INDV-094201-2016

PATIENT

DRUGS (2)
  1. FOY [Suspect]
     Active Substance: GABEXATE MESYLATE
     Indication: PANCREATITIS ACUTE
     Dosage: UNK
     Route: 065
  2. LEPETAN [Suspect]
     Active Substance: BUPRENORPHINE HYDROCHLORIDE
     Indication: PANCREATITIS ACUTE
     Dosage: UNK
     Route: 065

REACTIONS (2)
  - Hepatic function abnormal [Unknown]
  - Off label use [Unknown]
